FAERS Safety Report 18300482 (Version 1)
Quarter: 2020Q3

REPORT INFORMATION
  Report Type: Spontaneous
  Country: US (occurrence: US)
  Receive Date: 20200922
  Receipt Date: 20200922
  Transmission Date: 20201103
  Serious: No
  Sender: FDA-Public Use
  Company Number: None

PATIENT
  Age: 81 Year
  Sex: Female
  Weight: 71.21 kg

DRUGS (1)
  1. VALACYCLOVIR [Suspect]
     Active Substance: VALACYCLOVIR HYDROCHLORIDE
     Indication: FACIAL PARALYSIS
     Dosage: ?          QUANTITY:42 DF DOSAGE FORM;?
     Route: 048
     Dates: start: 20200901, end: 20200906

REACTIONS (5)
  - Toothache [None]
  - Lip dry [None]
  - Gingival pain [None]
  - External ear pain [None]
  - Pruritus [None]

NARRATIVE: CASE EVENT DATE: 20200904
